FAERS Safety Report 4446434-0 (Version None)
Quarter: 2004Q3

REPORT INFORMATION
  Report Type: 
  Country: None (occurrence: None)
  Receive Date: 20040907
  Receipt Date: 20040813
  Transmission Date: 20050211
  Serious: Yes (Other)
  Sender: FDA-Public Use
  Company Number: 2004060932

PATIENT
  Age: 37 Year
  Sex: Female
  Weight: 61.6892 kg

DRUGS (7)
  1. NEURONTIN [Suspect]
     Indication: ILL-DEFINED DISORDER
     Dosage: ORAL
     Route: 048
  2. CELEBREX [Suspect]
     Indication: PAIN
     Dosage: 200 MG (200 MG, 1 IN 1 D), ORAL
     Route: 048
     Dates: start: 20040810
  3. ACYCLOVIR [Concomitant]
  4. PANTOPRAZOLE [Concomitant]
  5. DIAZEPAM [Concomitant]
  6. QUETIAPINE FUMARATE [Concomitant]
  7. FLUOXETINE HCL [Concomitant]

REACTIONS (7)
  - APPENDICECTOMY [None]
  - BLADDER OPERATION [None]
  - MUSCLE TWITCHING [None]
  - POST PROCEDURAL COMPLICATION [None]
  - POST PROCEDURAL PAIN [None]
  - TOTAL HYSTERECTOMY [None]
  - TREATMENT NONCOMPLIANCE [None]
